FAERS Safety Report 20307658 (Version 3)
Quarter: 2022Q1

REPORT INFORMATION
  Report Type: Report from Study
  Country: US (occurrence: US)
  Receive Date: 20220107
  Receipt Date: 20220216
  Transmission Date: 20220423
  Serious: Yes (Other)
  Sender: FDA-Public Use
  Company Number: US-GILEAD-2021-0562709

PATIENT
  Age: 31 Year
  Sex: Female

DRUGS (17)
  1. AZTREONAM LYSINE [Suspect]
     Active Substance: AZTREONAM LYSINE
     Indication: Cystic fibrosis
     Dosage: 75 MG VIA NEB TID FOR 28 DAYS ON AND THEN 28 DAYS OFF
     Route: 055
     Dates: start: 20210407
  2. TOBRAMYCIN [Suspect]
     Active Substance: TOBRAMYCIN
     Indication: Product used for unknown indication
     Dosage: 1 AMPULE, BID 28 DAYS ON AND 28 DAYS OFF
     Route: 055
     Dates: start: 20170721
  3. TRIKAFTA [Suspect]
     Active Substance: ELEXACAFTOR\IVACAFTOR\TEZACAFTOR
     Indication: Cystic fibrosis
     Dosage: 2 ORANGE TABLETS BY MOUTH IN THE MORNING AND 1 BLUE TABLET IN THE EVENING WITH FATTY MEALS
     Route: 048
     Dates: start: 20211222
  4. ARIPIPRAZOLE [Concomitant]
     Active Substance: ARIPIPRAZOLE
  5. ATORVASTATIN [Concomitant]
     Active Substance: ATORVASTATIN
  6. AZITHROMYCIN [Concomitant]
     Active Substance: AZITHROMYCIN
  7. BACLOFEN [Concomitant]
     Active Substance: BACLOFEN
  8. CIPRO [Concomitant]
     Active Substance: CIPROFLOXACIN HYDROCHLORIDE
  9. DESVENLAFAXINE [Concomitant]
     Active Substance: DESVENLAFAXINE
  10. DIAZEPAM [Concomitant]
     Active Substance: DIAZEPAM
  11. ESCITALOPRAM [Concomitant]
     Active Substance: ESCITALOPRAM OXALATE
  12. FAMOTIDINE [Concomitant]
     Active Substance: FAMOTIDINE
  13. KETOROLAC [Concomitant]
     Active Substance: KETOROLAC TROMETHAMINE
  14. MEROPENEM [Concomitant]
     Active Substance: MEROPENEM
  15. ACETAMINOPHEN\OXYCODONE HYDROCHLORIDE [Concomitant]
     Active Substance: ACETAMINOPHEN\OXYCODONE HYDROCHLORIDE
  16. PERTZYE [Concomitant]
     Active Substance: PANCRELIPASE AMYLASE\PANCRELIPASE LIPASE\PANCRELIPASE PROTEASE
  17. SPIRONOLACTONE [Concomitant]
     Active Substance: SPIRONOLACTONE

REACTIONS (15)
  - Nephrolithiasis [Unknown]
  - Renal stone removal [Unknown]
  - Endoscopy [Unknown]
  - Colonoscopy [Unknown]
  - Haematochezia [Unknown]
  - Constipation [Unknown]
  - Flatulence [Unknown]
  - Diarrhoea [Unknown]
  - Weight increased [Unknown]
  - Oxygen saturation decreased [Not Recovered/Not Resolved]
  - Dyspnoea [Not Recovered/Not Resolved]
  - Abdominal distension [Unknown]
  - Abdominal pain upper [Unknown]
  - Haematuria [Unknown]
  - Fatigue [Unknown]

NARRATIVE: CASE EVENT DATE: 20220115
